FAERS Safety Report 21438882 (Version 1)
Quarter: 2022Q4

REPORT INFORMATION
  Report Type: Spontaneous
  Country: ES (occurrence: ES)
  Receive Date: 20221011
  Receipt Date: 20221011
  Transmission Date: 20230112
  Serious: Yes (Other)
  Sender: FDA-Public Use
  Company Number: None

PATIENT
  Age: 47 Year
  Sex: Male

DRUGS (4)
  1. BRODALUMAB [Suspect]
     Active Substance: BRODALUMAB
     Indication: Psoriasis
     Route: 065
     Dates: start: 20220220, end: 20220220
  2. BRODALUMAB [Suspect]
     Active Substance: BRODALUMAB
     Route: 065
     Dates: start: 20220227, end: 20220227
  3. BRODALUMAB [Suspect]
     Active Substance: BRODALUMAB
     Route: 065
     Dates: start: 20220306, end: 20220912
  4. ENBREL [Suspect]
     Active Substance: ETANERCEPT
     Indication: Psoriasis
     Route: 065
     Dates: start: 20161011, end: 20220214

REACTIONS (1)
  - Malignant melanoma [Unknown]

NARRATIVE: CASE EVENT DATE: 20220813
